FAERS Safety Report 20223936 (Version 2)
Quarter: 2022Q1

REPORT INFORMATION
  Report Type: Spontaneous
  Country: US (occurrence: None)
  Receive Date: 20211223
  Receipt Date: 20220203
  Transmission Date: 20220423
  Serious: No
  Sender: FDA-Public Use
  Company Number: 2021A829999

PATIENT
  Weight: 113.4 kg

DRUGS (1)
  1. BYDUREON BCISE [Suspect]
     Active Substance: EXENATIDE
     Indication: Diabetes mellitus
     Route: 058

REACTIONS (9)
  - Blood pressure decreased [Unknown]
  - Limb injury [Unknown]
  - Disability [Unknown]
  - Weight decreased [Unknown]
  - Dizziness [Unknown]
  - Blood glucose decreased [Unknown]
  - Incorrect dose administered by device [Unknown]
  - Device leakage [Unknown]
  - Wrong technique in device usage process [Unknown]
